FAERS Safety Report 9385673 (Version 4)
Quarter: 2013Q4

REPORT INFORMATION
  Report Type: Report from Study
  Country: US (occurrence: US)
  Receive Date: 20130705
  Receipt Date: 20131014
  Transmission Date: 20140711
  Serious: Yes (Other)
  Sender: FDA-Public Use
  Company Number: US-GLAXOSMITHKLINE-B0905792A

PATIENT
  Age: 43 Year
  Sex: Male
  Weight: 100.5 kg

DRUGS (9)
  1. ROPINIROLE [Suspect]
     Indication: PARKINSON^S DISEASE
     Dates: start: 20130516, end: 20130626
  2. GABAPENTIN [Concomitant]
     Indication: PAIN
     Dosage: 1.2G PER DAY
     Dates: start: 201211
  3. ATENOLOL [Concomitant]
     Indication: HYPERTENSION
     Dosage: 50MG PER DAY
     Dates: start: 201103
  4. PAROXETINE [Concomitant]
     Indication: DEPRESSION
     Dosage: 30MG PER DAY
     Dates: start: 201003
  5. SIMVASTATIN [Concomitant]
     Indication: HYPERLIPIDAEMIA
     Dosage: 20MG PER DAY
     Dates: start: 201109
  6. ALEVE [Concomitant]
     Indication: PAIN
     Dosage: 2TAB PER DAY
     Dates: start: 201003
  7. L-DOPA [Concomitant]
     Indication: PARKINSON^S DISEASE
     Dosage: 800MG PER DAY
  8. CARBIDOPA [Concomitant]
     Indication: PARKINSON^S DISEASE
     Route: 048
  9. SALSALATE [Concomitant]
     Indication: PAIN
     Route: 048

REACTIONS (1)
  - Impulsive behaviour [Recovered/Resolved]
